FAERS Safety Report 4831054-6 (Version None)
Quarter: 2005Q4

REPORT INFORMATION
  Report Type: 
  Country: None (occurrence: None)
  Receive Date: 20051114
  Receipt Date: 20051103
  Transmission Date: 20060501
  Serious: Yes (Hospitalization)
  Sender: FDA-Public Use
  Company Number: 2005S1000318

PATIENT
  Age: 62 Year
  Sex: Male

DRUGS (5)
  1. SORIATANE [Suspect]
     Indication: PSORIASIS
     Dosage: 10 MG;QD;PO
     Route: 048
     Dates: start: 20050608, end: 20050628
  2. OXATOMIDE [Concomitant]
  3. METHYLPREDNISOLONE [Concomitant]
  4. OMEPRAZOLE [Concomitant]
  5. BROMAZEPAM [Concomitant]

REACTIONS (1)
  - HEPATITIS CHOLESTATIC [None]
